FAERS Safety Report 9496915 (Version 1)
Quarter: 2013Q3

REPORT INFORMATION
  Report Type: Spontaneous
  Country: JP (occurrence: JP)
  Receive Date: 20130904
  Receipt Date: 20130904
  Transmission Date: 20140515
  Serious: Yes (Other)
  Sender: FDA-Public Use
  Company Number: JP-OTSUKA-JP-2013-13433

PATIENT
  Age: 61 Year
  Sex: Male

DRUGS (1)
  1. PLETAAL [Suspect]
     Route: 048

REACTIONS (1)
  - Thrombosis in device [Unknown]
